FAERS Safety Report 8847865 (Version 2)
Quarter: 2012Q4

REPORT INFORMATION
  Report Type: 
  Country: US (occurrence: US)
  Receive Date: 20121018
  Receipt Date: 20121102
  Transmission Date: 20130627
  Serious: Yes (Other)
  Sender: FDA-Public Use
  Company Number: US-GILEAD-2012-0063165

PATIENT
  Sex: Female

DRUGS (2)
  1. LETAIRIS [Suspect]
     Indication: PULMONARY HYPERTENSION
     Dosage: 5 mg, UNK
     Route: 048
     Dates: start: 20100715
  2. LETAIRIS [Suspect]
     Indication: PULMONARY EMBOLISM

REACTIONS (2)
  - Thrombosis [Unknown]
  - Tinnitus [Unknown]
